FAERS Safety Report 8941436 (Version 3)
Quarter: 2012Q4

REPORT INFORMATION
  Report Type: Report from Study
  Country: US (occurrence: US)
  Receive Date: 20121203
  Receipt Date: 20121228
  Transmission Date: 20130627
  Serious: Yes (Death)
  Sender: FDA-Public Use
  Company Number: US-ROCHE-1158316

PATIENT
  Sex: Female
  Weight: 53.12 kg

DRUGS (9)
  1. CAPECITABINE [Suspect]
     Indication: PRODUCT USED FOR UNKNOWN INDICATION
     Route: 048
     Dates: start: 20090617, end: 201007
  2. ACIDOPHILUS [Concomitant]
     Route: 048
  3. CARTIA (UNITED STATES) [Concomitant]
     Dosage: one oral  every morning
     Route: 048
  4. COUMADIN [Concomitant]
     Route: 048
  5. DIGOXIN [Concomitant]
     Route: 048
  6. LISINOPRIL [Concomitant]
     Route: 048
  7. LORAZEPAM [Concomitant]
     Indication: NAUSEA
     Route: 048
  8. OXYCONTIN [Concomitant]
     Route: 048
  9. VICODIN [Concomitant]
     Dosage: 7.5-75 mg
     Route: 048

REACTIONS (1)
  - Breast cancer [Fatal]
